FAERS Safety Report 20644834 (Version 1)
Quarter: 2022Q1

REPORT INFORMATION
  Report Type: Report from Study
  Country: FR (occurrence: FR)
  Receive Date: 20220328
  Receipt Date: 20220328
  Transmission Date: 20220424
  Serious: Yes (Hospitalization, Other)
  Sender: FDA-Public Use
  Company Number: FR-GLAXOSMITHKLINE-FR2022EME051006

PATIENT
  Age: 68 Year
  Sex: Male
  Weight: 86 kg

DRUGS (34)
  1. BELANTAMAB MAFODOTIN [Suspect]
     Active Substance: BELANTAMAB MAFODOTIN
     Indication: Plasma cell myeloma
     Dosage: 210 MG, EVERY THREE WEEKS
     Route: 042
     Dates: start: 20210104
  2. BELANTAMAB MAFODOTIN [Suspect]
     Active Substance: BELANTAMAB MAFODOTIN
     Dosage: 210 MG, EVERY THREE WEEKS
     Route: 042
     Dates: start: 20210125
  3. BELANTAMAB MAFODOTIN [Suspect]
     Active Substance: BELANTAMAB MAFODOTIN
     Dosage: 210 MG, EVERY THREE WEEKS
     Route: 042
     Dates: start: 20210217
  4. BELANTAMAB MAFODOTIN [Suspect]
     Active Substance: BELANTAMAB MAFODOTIN
     Dosage: 210 MG, EVERY THREE WEEKS
     Route: 042
     Dates: start: 20210331
  5. BELANTAMAB MAFODOTIN [Suspect]
     Active Substance: BELANTAMAB MAFODOTIN
     Dosage: 210 MG, EVERY THREE WEEKS
     Route: 042
     Dates: start: 20210429
  6. BELANTAMAB MAFODOTIN [Suspect]
     Active Substance: BELANTAMAB MAFODOTIN
     Dosage: 210 MG, EVERY THREE WEEKS
     Route: 042
     Dates: start: 20210519
  7. BELANTAMAB MAFODOTIN [Suspect]
     Active Substance: BELANTAMAB MAFODOTIN
     Dosage: 210 MG, EVERY THREE WEEKS
     Route: 042
     Dates: start: 20210630
  8. BELANTAMAB MAFODOTIN [Suspect]
     Active Substance: BELANTAMAB MAFODOTIN
     Dosage: 210 MG, EVERY THREE WEEKS
     Route: 042
     Dates: start: 20210721
  9. BELANTAMAB MAFODOTIN [Suspect]
     Active Substance: BELANTAMAB MAFODOTIN
     Dosage: 210 MG, EVERY THREE WEEKS
     Route: 042
     Dates: start: 20210811
  10. BELANTAMAB MAFODOTIN [Suspect]
     Active Substance: BELANTAMAB MAFODOTIN
     Dosage: 210 MG, EVERY THREE WEEKS
     Route: 042
     Dates: start: 20210901
  11. BELANTAMAB MAFODOTIN [Suspect]
     Active Substance: BELANTAMAB MAFODOTIN
     Dosage: 210 MG, EVERY THREE WEEKS
     Route: 042
     Dates: start: 20211013
  12. BELANTAMAB MAFODOTIN [Suspect]
     Active Substance: BELANTAMAB MAFODOTIN
     Dosage: 210 MG, EVERY THREE WEEKS
     Route: 042
     Dates: start: 20211021
  13. BELANTAMAB MAFODOTIN [Suspect]
     Active Substance: BELANTAMAB MAFODOTIN
     Dosage: 210 MG, EVERY THREE WEEKS
     Route: 042
     Dates: start: 20211103
  14. BELANTAMAB MAFODOTIN [Suspect]
     Active Substance: BELANTAMAB MAFODOTIN
     Dosage: 210 MG, EVERY THREE WEEKS
     Route: 042
     Dates: start: 20211124
  15. BELANTAMAB MAFODOTIN [Suspect]
     Active Substance: BELANTAMAB MAFODOTIN
     Dosage: 210 MG, EVERY THREE WEEKS
     Route: 042
     Dates: start: 20211215
  16. BELANTAMAB MAFODOTIN [Suspect]
     Active Substance: BELANTAMAB MAFODOTIN
     Dosage: 210 MG, EVERY THREE WEEKS
     Route: 042
     Dates: start: 20220119
  17. BELANTAMAB MAFODOTIN [Suspect]
     Active Substance: BELANTAMAB MAFODOTIN
     Dosage: 150 UNK, EVERY THREE WEEKS
     Route: 042
     Dates: start: 20220209
  18. BELANTAMAB MAFODOTIN [Suspect]
     Active Substance: BELANTAMAB MAFODOTIN
     Dosage: 150 UNK, EVERY THREE WEEKS
     Route: 042
     Dates: start: 20220302
  19. BICARBONATE OF SODA [Concomitant]
  20. BORTEZOMIB [Concomitant]
     Active Substance: BORTEZOMIB
     Dosage: UNK
     Dates: start: 201202, end: 201309
  21. BORTEZOMIB [Concomitant]
     Active Substance: BORTEZOMIB
     Dosage: UNK
     Dates: start: 201909, end: 202004
  22. LENALIDOMIDE [Concomitant]
     Active Substance: LENALIDOMIDE
     Dosage: UNK
     Dates: start: 201202, end: 201309
  23. LENALIDOMIDE [Concomitant]
     Active Substance: LENALIDOMIDE
     Dosage: UNK
     Dates: start: 20200409, end: 202008
  24. DEXAMETHASONE [Concomitant]
     Active Substance: DEXAMETHASONE
     Dosage: UNK
     Dates: start: 201202, end: 201309
  25. DEXAMETHASONE [Concomitant]
     Active Substance: DEXAMETHASONE
     Dosage: UNK
     Dates: start: 201604, end: 201909
  26. DEXAMETHASONE [Concomitant]
     Active Substance: DEXAMETHASONE
     Dosage: UNK
     Dates: start: 201909, end: 202004
  27. DEXAMETHASONE [Concomitant]
     Active Substance: DEXAMETHASONE
     Dosage: UNK
     Dates: start: 20200409, end: 202008
  28. DEXAMETHASONE [Concomitant]
     Active Substance: DEXAMETHASONE
     Dosage: UNK
     Dates: start: 202008, end: 20201006
  29. POMALIDOMIDE [Concomitant]
     Active Substance: POMALIDOMIDE
     Dosage: UNK
     Dates: start: 201604, end: 201909
  30. POMALIDOMIDE [Concomitant]
     Active Substance: POMALIDOMIDE
     Dosage: UNK
     Dates: start: 202008, end: 20201006
  31. CYCLOPHOSPHAMIDE [Concomitant]
     Active Substance: CYCLOPHOSPHAMIDE
     Dosage: UNK
     Dates: start: 201604, end: 201609
  32. DARATUMUMAB [Concomitant]
     Active Substance: DARATUMUMAB
     Dosage: UNK
     Dates: start: 201909, end: 202004
  33. DARATUMUMAB [Concomitant]
     Active Substance: DARATUMUMAB
     Dosage: UNK
     Dates: start: 20200409, end: 202008
  34. CARFILZOMIB [Concomitant]
     Active Substance: CARFILZOMIB
     Dosage: UNK
     Dates: start: 202008, end: 20201006

REACTIONS (3)
  - Renal failure [Recovered/Resolved]
  - Corneal opacity [Recovered/Resolved]
  - Ocular toxicity [Not Recovered/Not Resolved]
